FAERS Safety Report 5168356-2 (Version None)
Quarter: 2006Q4

REPORT INFORMATION
  Report Type: 
  Country: None (occurrence: None)
  Receive Date: 20061129
  Receipt Date: 20061123
  Transmission Date: 20070319
  Serious: Yes (Hospitalization, Other)
  Sender: FDA-Public Use
  Company Number: FRWYE334325OCT06

PATIENT
  Sex: Male

DRUGS (2)
  1. EFFEXOR [Suspect]
     Dosage: SEE IMAGE
     Route: 048
     Dates: end: 20060101
  2. EFFEXOR [Suspect]
     Dosage: SEE IMAGE
     Route: 048
     Dates: start: 20060101

REACTIONS (2)
  - CONDITION AGGRAVATED [None]
  - EPILEPSY [None]
